FAERS Safety Report 8181192-8 (Version None)
Quarter: 2012Q1

REPORT INFORMATION
  Report Type: 
  Country: None (occurrence: None)
  Receive Date: 20120302
  Receipt Date: 20120223
  Transmission Date: 20120608
  Serious: Yes (Hospitalization)
  Sender: FDA-Public Use
  Company Number: US-GLAXOSMITHKLINE-B0706889A

PATIENT
  Sex: Female
  Weight: 112 kg

DRUGS (11)
  1. AVANDAMET [Suspect]
     Indication: DIABETES MELLITUS
     Route: 048
     Dates: end: 20050401
  2. INSULIN [Concomitant]
  3. METFORMIN HCL [Concomitant]
  4. GLIMEPIRIDE [Concomitant]
  5. PRAVASTATIN [Concomitant]
  6. ZANTAC [Concomitant]
  7. LOPRESSOR [Concomitant]
  8. AVANDIA [Suspect]
     Indication: DIABETES MELLITUS
     Dosage: 2MG TWICE PER DAY
     Route: 048
     Dates: start: 20050401
  9. AMLODIPINE [Concomitant]
  10. EVISTA [Concomitant]
  11. CITALOPRAM HYDROBROMIDE [Concomitant]

REACTIONS (6)
  - CARDIAC PACEMAKER INSERTION [None]
  - CARDIAC FAILURE CONGESTIVE [None]
  - ULNA FRACTURE [None]
  - TRANSIENT ISCHAEMIC ATTACK [None]
  - ATRIAL FIBRILLATION [None]
  - ANGINA PECTORIS [None]
